FAERS Safety Report 21029082 (Version 9)
Quarter: 2022Q4

REPORT INFORMATION
  Report Type: Report from Study
  Country: RU (occurrence: None)
  Receive Date: 20220630
  Receipt Date: 20221109
  Transmission Date: 20230113
  Serious: Yes (Hospitalization)
  Sender: FDA-Public Use
  Company Number: RU-Eisai Medical Research-EC-2022-118099

PATIENT
  Age: 61 Year
  Sex: Male
  Weight: 86 kg

DRUGS (9)
  1. LENVATINIB [Suspect]
     Active Substance: LENVATINIB
     Indication: Clear cell renal cell carcinoma
     Route: 048
     Dates: start: 20220125, end: 20220622
  2. LENVATINIB [Suspect]
     Active Substance: LENVATINIB
     Dosage: STARTING DOSE AT 20 MG , FLUCTUATED DOSAGE.
     Route: 048
     Dates: start: 20220705
  3. QUAVONLIMAB [Suspect]
     Active Substance: QUAVONLIMAB
     Indication: Clear cell renal cell carcinoma
     Dosage: MK-1308A 425 MG (QUAVONLIMAB MK-1308 25 MG + PEMBROLIZUMAB 400 MG)
     Route: 042
     Dates: start: 20220125, end: 20220603
  4. QUAVONLIMAB [Suspect]
     Active Substance: QUAVONLIMAB
     Dosage: MK-1308A 425 MG (QUAVONLIMAB MK-1308 25 MG + PEMBROLIZUMAB 400 MG)
     Route: 042
     Dates: start: 20220715
  5. MOXONIDINE [Concomitant]
     Active Substance: MOXONIDINE
     Dates: start: 20220416
  6. TRAMADOL HYDROCHLORIDE [Concomitant]
     Active Substance: TRAMADOL HYDROCHLORIDE
     Dates: start: 20220606, end: 20220914
  7. INDAPAMIDE\PERINDOPRIL [Concomitant]
     Active Substance: INDAPAMIDE\PERINDOPRIL
     Dates: start: 20220510
  8. PEMBROLIZUMAB [Suspect]
     Active Substance: PEMBROLIZUMAB
     Dates: start: 20220125
  9. PEMBROLIZUMAB [Suspect]
     Active Substance: PEMBROLIZUMAB
     Dates: start: 20220715

REACTIONS (1)
  - Pneumonia [Recovered/Resolved]

NARRATIVE: CASE EVENT DATE: 20220620
